FAERS Safety Report 14882851 (Version 2)
Quarter: 2018Q2

REPORT INFORMATION
  Report Type: Spontaneous
  Country: US (occurrence: US)
  Receive Date: 20180511
  Receipt Date: 20180517
  Transmission Date: 20180711
  Serious: Yes (Death)
  Sender: FDA-Public Use
  Company Number: US-CELGENEUS-USA-20180502594

PATIENT
  Age: 69 Year
  Sex: Female
  Weight: 89 kg

DRUGS (1)
  1. REVLIMID [Suspect]
     Active Substance: LENALIDOMIDE
     Indication: PLASMA CELL MYELOMA
     Dosage: 25 MILLIGRAM
     Route: 048
     Dates: start: 20180219

REACTIONS (3)
  - Hepatic cirrhosis [Fatal]
  - Procedural complication [Fatal]
  - Intestinal varices haemorrhage [Fatal]

NARRATIVE: CASE EVENT DATE: 20180424
